FAERS Safety Report 8796595 (Version 2)
Quarter: 2012Q4

REPORT INFORMATION
  Report Type: 
  Country: US (occurrence: US)
  Receive Date: 20120920
  Receipt Date: 20121124
  Transmission Date: 20130627
  Serious: No
  Sender: FDA-Public Use
  Company Number: US-009507513-1209USA006913

PATIENT
  Age: 45 Year
  Sex: Female

DRUGS (1)
  1. NUVARING [Suspect]
     Indication: MENORRHAGIA
     Dosage: UNK
     Route: 067
     Dates: start: 201206

REACTIONS (3)
  - Nasopharyngitis [Not Recovered/Not Resolved]
  - Vaginal discharge [Not Recovered/Not Resolved]
  - Vulvovaginal discomfort [Not Recovered/Not Resolved]
